FAERS Safety Report 18157116 (Version 4)
Quarter: 2021Q1

REPORT INFORMATION
  Report Type: Report from Study
  Country: None (occurrence: US)
  Receive Date: 20200817
  Receipt Date: 20210203
  Transmission Date: 20210419
  Serious: Yes (Other)
  Sender: FDA-Public Use
  Company Number: US-ABBVIE-20P-163-3397209-00

PATIENT
  Age: 64 Year
  Sex: Male

DRUGS (5)
  1. IMBRUVICA [Suspect]
     Active Substance: IBRUTINIB
     Route: 048
     Dates: start: 2020, end: 2020
  2. IMBRUVICA [Suspect]
     Active Substance: IBRUTINIB
     Route: 048
     Dates: start: 20200429
  3. IMBRUVICA [Suspect]
     Active Substance: IBRUTINIB
     Indication: CHRONIC LYMPHOCYTIC LEUKAEMIA
     Route: 048
  4. IMBRUVICA [Suspect]
     Active Substance: IBRUTINIB
     Indication: CHRONIC LYMPHOCYTIC LEUKAEMIA
     Route: 048
     Dates: start: 20200429
  5. IMBRUVICA [Suspect]
     Active Substance: IBRUTINIB
     Route: 048
     Dates: start: 20200429

REACTIONS (32)
  - Lymph node pain [Unknown]
  - Syncope [Unknown]
  - Blister [Unknown]
  - Fatigue [Unknown]
  - Blood pressure increased [Unknown]
  - Nausea [Not Recovered/Not Resolved]
  - Nephrolithiasis [Unknown]
  - Blood pressure decreased [Recovered/Resolved]
  - Dizziness postural [Unknown]
  - Pyrexia [Unknown]
  - Oropharyngeal pain [Unknown]
  - Asthenia [Not Recovered/Not Resolved]
  - Tremor [Not Recovered/Not Resolved]
  - Blood count abnormal [Recovered/Resolved]
  - Oral pain [Unknown]
  - Mobility decreased [Unknown]
  - White blood cell count abnormal [Recovered/Resolved]
  - Rash [Recovered/Resolved]
  - Blood pressure fluctuation [Unknown]
  - Loss of consciousness [Recovered/Resolved]
  - Lymphadenopathy [Recovered/Resolved]
  - Pulse abnormal [Unknown]
  - Malaise [Unknown]
  - Abdominal pain upper [Unknown]
  - Rash papular [Not Recovered/Not Resolved]
  - Candida infection [Not Recovered/Not Resolved]
  - Dry skin [Not Recovered/Not Resolved]
  - Ear discomfort [Unknown]
  - Pharyngeal erythema [Unknown]
  - Back pain [Recovered/Resolved]
  - Rash macular [Unknown]
  - Atrial fibrillation [Unknown]

NARRATIVE: CASE EVENT DATE: 2020
